FAERS Safety Report 25245481 (Version 2)
Quarter: 2025Q2

REPORT INFORMATION
  Report Type: Spontaneous
  Country: US (occurrence: US)
  Receive Date: 20250428
  Receipt Date: 20250514
  Transmission Date: 20250717
  Serious: Yes (Other)
  Sender: BAYER HEALTHCARE LLC
  Company Number: US-BAYER-2025A055613

PATIENT
  Age: 42 Year
  Sex: Female

DRUGS (1)
  1. ALEVE [Suspect]
     Active Substance: NAPROXEN SODIUM
     Indication: Pain
     Route: 048
     Dates: start: 1999, end: 2007

REACTIONS (1)
  - Renal atrophy [Not Recovered/Not Resolved]

NARRATIVE: CASE EVENT DATE: 20120101
